FAERS Safety Report 6337297-7 (Version None)
Quarter: 2009Q3

REPORT INFORMATION
  Report Type: 
  Country: None (occurrence: None)
  Receive Date: 20090828
  Receipt Date: 20090828
  Transmission Date: 20100115
  Serious: Yes (Hospitalization)
  Sender: FDA-Public Use
  Company Number: None

PATIENT
  Age: 72 Year
  Sex: Female

DRUGS (12)
  1. CAPECITABINE 500MG [Suspect]
     Indication: GASTRIC CANCER
     Dosage: 1000MG BID PO
     Route: 048
     Dates: start: 20090721, end: 20090730
  2. DEXAMETHASONE [Concomitant]
  3. OXALIPLATIN [Concomitant]
  4. EPIRUBICIN [Concomitant]
  5. APREPITANT [Concomitant]
  6. PANCREALIPASE [Concomitant]
  7. CHROMAGEN [Concomitant]
  8. RANITIDINE [Concomitant]
  9. ATENOLOL [Concomitant]
  10. TRIAMTERENE AND HYDROCHLOROTHIAZIDE [Concomitant]
  11. FELODIPINE [Concomitant]
  12. MIRTAZAPINE [Concomitant]

REACTIONS (3)
  - DIARRHOEA [None]
  - DIZZINESS [None]
  - ESCHERICHIA URINARY TRACT INFECTION [None]
